FAERS Safety Report 19191824 (Version 1)
Quarter: 2021Q2

REPORT INFORMATION
  Report Type: Other
  Country: US (occurrence: US)
  Receive Date: 20210429
  Receipt Date: 20210429
  Transmission Date: 20210717
  Serious: Yes (Other)
  Sender: FDA-Public Use
  Company Number: US-CHEMI SPA-2109969

PATIENT
  Age: 8 Year
  Sex: Male

DRUGS (4)
  1. TEMOZOLOMIDE. [Suspect]
     Active Substance: TEMOZOLOMIDE
  2. DINUTUXIMAB [Concomitant]
     Active Substance: DINUTUXIMAB
  3. IRINOTECAN HYDROCHLORIDE. [Concomitant]
     Active Substance: IRINOTECAN HYDROCHLORIDE
  4. CEFIXIME. [Concomitant]
     Active Substance: CEFIXIME

REACTIONS (2)
  - Clostridium difficile colitis [Unknown]
  - Pyrexia [Unknown]
